FAERS Safety Report 19485270 (Version 2)
Quarter: 2021Q4

REPORT INFORMATION
  Report Type: Report from Study
  Country: US (occurrence: US)
  Receive Date: 20210702
  Receipt Date: 20211123
  Transmission Date: 20220304
  Serious: Yes (Disabling, Other)
  Sender: FDA-Public Use
  Company Number: US-UCBSA-2021023837

PATIENT
  Age: 73 Year
  Sex: Female

DRUGS (2)
  1. CERTOLIZUMAB PEGOL [Suspect]
     Active Substance: CERTOLIZUMAB PEGOL
     Indication: Rheumatoid arthritis
     Dosage: 400 MILLIGRAM, EV 4 WEEKS
     Dates: start: 20201106
  2. PREDNISONE [Concomitant]
     Active Substance: PREDNISONE
     Indication: Product used for unknown indication
     Dosage: UNK

REACTIONS (5)
  - Rheumatoid arthritis [Not Recovered/Not Resolved]
  - Rotator cuff syndrome [Unknown]
  - Limb discomfort [Not Recovered/Not Resolved]
  - Vaccination complication [Unknown]
  - COVID-19 immunisation [Unknown]

NARRATIVE: CASE EVENT DATE: 20210301
